FAERS Safety Report 8760210 (Version 1)
Quarter: 2012Q4

REPORT INFORMATION
  Report Type: Spontaneous
  Country: US (occurrence: None)
  Receive Date: 20120828
  Receipt Date: 20120828
  Transmission Date: 20130627
  Serious: Yes (Disabling)
  Sender: FDA-Public Use
  Company Number: None

PATIENT
  Age: 47 Year
  Sex: Male
  Weight: 99.79 kg

DRUGS (2)
  1. PEGASYS [Suspect]
     Indication: HEPATITIS C
     Dosage: once weekly, muscle injection
     Dates: start: 201004, end: 201009
  2. RIBAVIRIN [Suspect]
     Dosage: 3 tablets twice a day, by mouth
     Route: 048
     Dates: start: 201004, end: 201009

REACTIONS (8)
  - Headache [None]
  - Influenza like illness [None]
  - Abdominal discomfort [None]
  - Asthma [None]
  - Platelet count decreased [None]
  - Fatigue [None]
  - Varices oesophageal [None]
  - Neuropathy peripheral [None]
